FAERS Safety Report 8847265 (Version 1)
Quarter: 2012Q4

REPORT INFORMATION
  Report Type: 
  Country: US (occurrence: US)
  Receive Date: 20121018
  Receipt Date: 20121018
  Transmission Date: 20130627
  Serious: Yes (Hospitalization, Disabling, Other)
  Sender: FDA-Public Use
  Company Number: US-009507513-2012SP035543

PATIENT

DRUGS (2)
  1. NUVARING [Suspect]
     Indication: CONTRACEPTION
     Dosage: UNK
     Dates: start: 20060509, end: 20060626
  2. XANAX [Concomitant]
     Dosage: 0.25 mg, prn

REACTIONS (15)
  - Abortion spontaneous [Unknown]
  - Pulmonary embolism [Unknown]
  - Depression [Not Recovered/Not Resolved]
  - Maternal exposure before pregnancy [Unknown]
  - Vaginal haemorrhage [Unknown]
  - Anxiety [Not Recovered/Not Resolved]
  - Adjustment disorder [Unknown]
  - Pulmonary mass [Unknown]
  - Syncope [Recovered/Resolved]
  - Arrhythmia [Unknown]
  - Sinus bradycardia [Unknown]
  - Poor quality sleep [Unknown]
  - Back pain [Unknown]
  - Nightmare [Unknown]
  - Homicide [Unknown]
